FAERS Safety Report 7824284-2 (Version None)
Quarter: 2011Q4

REPORT INFORMATION
  Report Type: 
  Country: None (occurrence: None)
  Receive Date: 20111019
  Receipt Date: 20111015
  Transmission Date: 20120403
  Serious: Yes (Other)
  Sender: FDA-Public Use
  Company Number: US-PFIZER INC-2011247045

PATIENT
  Sex: Female
  Weight: 58.957 kg

DRUGS (4)
  1. TRILEPTAL [Concomitant]
     Dosage: 1200 MG, DAILY
  2. FLAGYL [Interacting]
     Indication: PELVIC INFLAMMATORY DISEASE
     Dosage: 500 MG, UNK
     Dates: start: 20100101, end: 20110101
  3. GEODON [Suspect]
     Indication: SCHIZOAFFECTIVE DISORDER
     Dosage: 80 MG, DAILY
     Dates: start: 20100101, end: 20111001
  4. AZITHROMYCIN [Interacting]
     Indication: PELVIC INFLAMMATORY DISEASE
     Dosage: 1000 MG, UNK
     Dates: start: 20100101, end: 20110101

REACTIONS (3)
  - DRUG INEFFECTIVE [None]
  - DRUG INTERACTION [None]
  - PELVIC INFLAMMATORY DISEASE [None]
